FAERS Safety Report 8771255 (Version 1)
Quarter: 2012Q4

REPORT INFORMATION
  Report Type: 
  Country: US (occurrence: US)
  Receive Date: 20120906
  Receipt Date: 20120906
  Transmission Date: 20130627
  Serious: No
  Sender: FDA-Public Use
  Company Number: US-BAYER-2012-092530

PATIENT
  Sex: Female

DRUGS (2)
  1. MIRENA [Suspect]
     Dosage: UNK
     Dates: start: 20120807, end: 20120824
  2. MIRENA [Suspect]
     Dosage: UNK
     Dates: start: 20120824

REACTIONS (2)
  - Pruritus generalised [None]
  - Insomnia [None]
